FAERS Safety Report 4697364-0 (Version None)
Quarter: 2005Q2

REPORT INFORMATION
  Report Type: 
  Country: None (occurrence: None)
  Receive Date: 20050621
  Receipt Date: 20050606
  Transmission Date: 20051028
  Serious: Yes (Hospitalization)
  Sender: FDA-Public Use
  Company Number: USA050699818

PATIENT
  Age: 69 Year
  Sex: Female

DRUGS (1)
  1. HUMULIN 70/30 [Suspect]
     Dosage: 14 U DAY

REACTIONS (2)
  - INJECTION SITE ABSCESS [None]
  - MYCOBACTERIUM CHELONEI INFECTION [None]
